FAERS Safety Report 7384689-3 (Version None)
Quarter: 2011Q1

REPORT INFORMATION
  Report Type: 
  Country: None (occurrence: None)
  Receive Date: 20110330
  Receipt Date: 20110316
  Transmission Date: 20110831
  Serious: Yes (Other)
  Sender: FDA-Public Use
  Company Number: PHHY2011MX21972

PATIENT
  Age: 66 Year
  Sex: Male

DRUGS (1)
  1. DIOVAN [Suspect]
     Indication: HYPERTENSION
     Dosage: 160 MG, DAILY
     Route: 048
     Dates: start: 20100301

REACTIONS (1)
  - CORONARY ARTERY OCCLUSION [None]
